APPROVED DRUG PRODUCT: MELLARIL
Active Ingredient: THIORIDAZINE HYDROCHLORIDE
Strength: 100MG/ML **Federal Register determination that product was not discontinued or withdrawn for safety or effectiveness reasons**
Dosage Form/Route: CONCENTRATE;ORAL
Application: N011808 | Product #018
Applicant: NOVARTIS PHARMACEUTICALS CORP
Approved: Approved Prior to Jan 1, 1982 | RLD: No | RS: No | Type: DISCN